FAERS Safety Report 4487119-4 (Version None)
Quarter: 2004Q4

REPORT INFORMATION
  Report Type: 
  Country: None (occurrence: None)
  Receive Date: 20041027
  Receipt Date: 20041019
  Transmission Date: 20050328
  Serious: Yes (Other)
  Sender: FDA-Public Use
  Company Number: PHEH2004US11220

PATIENT
  Age: 37 Year
  Sex: Female
  Weight: 87 kg

DRUGS (6)
  1. ZELNORM [Suspect]
     Indication: IRRITABLE BOWEL SYNDROME
     Dosage: 6 MG, ONCE/SINGLE
     Route: 048
     Dates: start: 20041019, end: 20041019
  2. NEXIUM [Concomitant]
     Indication: REFLUX OESOPHAGITIS
     Dosage: 20 MG, QD
     Route: 048
  3. ZYRTEC [Concomitant]
     Indication: HYPERSENSITIVITY
  4. ZITHROMAX [Concomitant]
     Indication: SINUSITIS
     Dosage: UNK, UNK
     Dates: start: 20041015, end: 20041018
  5. FLEXERIL [Concomitant]
     Dosage: 10 MG, PRN
     Route: 048
  6. ANAPROX [Concomitant]
     Dosage: UNK, PRN

REACTIONS (1)
  - RECTAL HAEMORRHAGE [None]
